FAERS Safety Report 15966134 (Version 1)
Quarter: 2019Q1

REPORT INFORMATION
  Report Type: Report from Study
  Country: DE (occurrence: DE)
  Receive Date: 20190215
  Receipt Date: 20190215
  Transmission Date: 20190418
  Serious: Yes (Other)
  Sender: FDA-Public Use
  Company Number: DE-ROCHE-2018986

PATIENT
  Age: 75 Year
  Sex: Female

DRUGS (37)
  1. PACLITAXEL. [Concomitant]
     Active Substance: PACLITAXEL
     Route: 042
     Dates: start: 20140715, end: 20140827
  2. CLONT (GERMANY) [Concomitant]
     Indication: INFECTION
     Route: 042
     Dates: start: 20140502, end: 20140507
  3. PASPERTIN (METOCLOPRAMIDE HYDROCHLORIDE) [Concomitant]
     Active Substance: METOCLOPRAMIDE HYDROCHLORIDE
     Indication: NAUSEA
     Route: 065
     Dates: start: 20140505, end: 20140507
  4. L-THYROXIN [Concomitant]
     Active Substance: LEVOTHYROXINE SODIUM
     Indication: HYPOTHYROIDISM
     Route: 048
     Dates: end: 20150108
  5. CONCOR [Concomitant]
     Active Substance: BISOPROLOL FUMARATE
     Indication: CORONARY ARTERY DISEASE
     Route: 048
     Dates: end: 20140804
  6. PANTOZOL [Concomitant]
     Active Substance: PANTOPRAZOLE SODIUM
     Route: 048
     Dates: start: 20140715, end: 20140804
  7. AUGMENTAN [Concomitant]
     Active Substance: AMOXICILLIN\CLAVULANATE POTASSIUM
     Indication: INFECTION
     Route: 042
     Dates: start: 20140502, end: 20140507
  8. CLEXANE [Concomitant]
     Active Substance: ENOXAPARIN SODIUM
     Route: 058
     Dates: start: 20140511, end: 20140524
  9. ENAHEXAL COMP [Concomitant]
     Active Substance: ENALAPRIL MALEATE\HYDROCHLOROTHIAZIDE
     Indication: HYPERTENSION
     Route: 048
     Dates: start: 20140522, end: 20140804
  10. TAZOBAC [Concomitant]
     Active Substance: PIPERACILLIN SODIUM\TAZOBACTAM SODIUM
     Indication: INFECTION
     Route: 042
     Dates: start: 20140512, end: 20140523
  11. NORVASC [Concomitant]
     Active Substance: AMLODIPINE BESYLATE
     Indication: HYPERTENSION
     Route: 048
     Dates: start: 20140531, end: 20140804
  12. ESIDRIX [Concomitant]
     Active Substance: HYDROCHLOROTHIAZIDE
     Indication: CORONARY ARTERY DISEASE
     Route: 048
     Dates: start: 20140327, end: 20140804
  13. CARBOPLATIN. [Concomitant]
     Active Substance: CARBOPLATIN
     Route: 042
     Dates: start: 20140623, end: 20140623
  14. DIGIMERCK [Concomitant]
     Active Substance: DIGITOXIN
     Indication: CARDIAC FAILURE
     Route: 048
     Dates: start: 20140401, end: 20141225
  15. NOVALGIN (METAMIZOLE SODIUM) [Concomitant]
     Active Substance: METAMIZOLE SODIUM
     Indication: PAIN
     Route: 048
     Dates: start: 20140501
  16. CLONT (GERMANY) [Concomitant]
     Route: 042
     Dates: start: 20140517, end: 20140524
  17. CARBOPLATIN. [Concomitant]
     Active Substance: CARBOPLATIN
     Route: 042
     Dates: start: 20140805, end: 20140805
  18. PACLITAXEL. [Concomitant]
     Active Substance: PACLITAXEL
     Indication: OVARIAN CANCER
     Route: 042
     Dates: start: 20140502, end: 20140623
  19. CLONT (GERMANY) [Concomitant]
     Route: 048
     Dates: start: 20140514, end: 20140516
  20. HYDROCHLOROTHIAZIDE. [Concomitant]
     Active Substance: HYDROCHLOROTHIAZIDE
     Indication: CORONARY ARTERY DISEASE
     Route: 048
     Dates: start: 20140514, end: 20140524
  21. CARBOPLATIN. [Concomitant]
     Active Substance: CARBOPLATIN
     Route: 042
     Dates: start: 20140530, end: 20140530
  22. CARBOPLATIN. [Concomitant]
     Active Substance: CARBOPLATIN
     Route: 042
     Dates: start: 20140827, end: 20140827
  23. HYDROCHLOROTHIAZIDE. [Concomitant]
     Active Substance: HYDROCHLOROTHIAZIDE
     Indication: HYPERTENSION
     Route: 048
     Dates: start: 20140827, end: 20141013
  24. VITAMIN B-COMPLEX FORTE [Concomitant]
     Indication: VITAMIN B COMPLEX DEFICIENCY
     Route: 048
     Dates: start: 20140625, end: 20141003
  25. EMEND [Concomitant]
     Active Substance: APREPITANT
     Route: 048
     Dates: start: 20140715, end: 20140717
  26. BEVACIZUMAB. [Suspect]
     Active Substance: BEVACIZUMAB
     Indication: OVARIAN CANCER
     Route: 042
     Dates: start: 20140530, end: 20140919
  27. BEVACIZUMAB. [Suspect]
     Active Substance: BEVACIZUMAB
     Route: 042
     Dates: start: 20140805
  28. CARBOPLATIN. [Concomitant]
     Active Substance: CARBOPLATIN
     Indication: OVARIAN CANCER
     Route: 042
     Dates: start: 20140502, end: 20140502
  29. CARBOPLATIN. [Concomitant]
     Active Substance: CARBOPLATIN
     Route: 042
     Dates: start: 20140715, end: 20140715
  30. NEUROCIL (GERMANY) [Concomitant]
     Indication: RESTLESSNESS
     Route: 048
  31. CLEXANE [Concomitant]
     Active Substance: ENOXAPARIN SODIUM
     Indication: THROMBOSIS PROPHYLAXIS
     Route: 058
     Dates: start: 20140430, end: 20140507
  32. POTASSIUM CHLORIDE. [Concomitant]
     Active Substance: POTASSIUM CHLORIDE
     Indication: HYPOKALAEMIA
     Route: 048
     Dates: start: 20140522, end: 20140524
  33. PANTOZOL [Concomitant]
     Active Substance: PANTOPRAZOLE SODIUM
     Route: 048
     Dates: start: 20140401, end: 20140625
  34. CLEXANE [Concomitant]
     Active Substance: ENOXAPARIN SODIUM
     Route: 058
     Dates: start: 20140806
  35. ZOLOFT [Concomitant]
     Active Substance: SERTRALINE HYDROCHLORIDE
     Indication: DEPRESSION
     Route: 048
     Dates: start: 20140517, end: 20140804
  36. AMLODIPIN [Concomitant]
     Active Substance: AMLODIPINE BESYLATE
     Indication: HYPERTENSION
     Route: 048
     Dates: start: 20140827, end: 20141003
  37. VALSARTAN. [Concomitant]
     Active Substance: VALSARTAN
     Indication: HYPERTENSION
     Route: 048
     Dates: start: 20140827

REACTIONS (2)
  - Subileus [Unknown]
  - Ascites [Not Recovered/Not Resolved]

NARRATIVE: CASE EVENT DATE: 20140826
